FAERS Safety Report 7532164-5 (Version None)
Quarter: 2011Q2

REPORT INFORMATION
  Report Type: 
  Country: None (occurrence: None)
  Receive Date: 20110608
  Receipt Date: 20110606
  Transmission Date: 20111010
  Serious: No
  Sender: FDA-Public Use
  Company Number: US-PFIZER INC-2011122697

PATIENT
  Sex: Female
  Weight: 58.957 kg

DRUGS (2)
  1. CYMBALTA [Concomitant]
     Indication: PAIN
     Dosage: UNK
  2. ADVIL LIQUI-GELS [Suspect]
     Indication: BACK PAIN
     Dosage: UNK, DAILY
     Route: 048
     Dates: start: 20110603, end: 20110605

REACTIONS (1)
  - DIZZINESS [None]
